FAERS Safety Report 5222248-9 (Version None)
Quarter: 2007Q1

REPORT INFORMATION
  Report Type: 
  Country: None (occurrence: None)
  Receive Date: 20070129
  Receipt Date: 20061121
  Transmission Date: 20070707
  Serious: No
  Sender: FDA-Public Use
  Company Number: US-GLAXOSMITHKLINE-A0628355A

PATIENT
  Sex: Female
  Weight: 56.8 kg

DRUGS (1)
  1. WELLBUTRIN [Suspect]
     Route: 048

REACTIONS (4)
  - DECREASED APPETITE [None]
  - EAR INFECTION [None]
  - HYPERTENSION [None]
  - PHARYNGOLARYNGEAL PAIN [None]
